FAERS Safety Report 10160668 (Version 1)
Quarter: 2014Q2

REPORT INFORMATION
  Report Type: Report from Study
  Country: DE (occurrence: DE)
  Receive Date: 20140508
  Receipt Date: 20140508
  Transmission Date: 20141212
  Serious: Yes (Hospitalization)
  Sender: FDA-Public Use
  Company Number: DE-ASTRAZENECA-2014SE29663

PATIENT
  Age: 80 Year
  Sex: Male

DRUGS (4)
  1. TICAGRELOR [Suspect]
     Indication: ISCHAEMIA
     Route: 048
     Dates: start: 20140414, end: 20140414
  2. TICAGRELOR [Suspect]
     Indication: ISCHAEMIA
     Route: 048
     Dates: start: 20140415
  3. TAMSULOSIN [Concomitant]
     Route: 048
  4. ATORVASTATIN [Concomitant]
     Dates: start: 20140414

REACTIONS (1)
  - Loss of consciousness [Not Recovered/Not Resolved]
